FAERS Safety Report 5710932-X (Version None)
Quarter: 2008Q2

REPORT INFORMATION
  Report Type: 
  Country: None (occurrence: None)
  Receive Date: 20080421
  Receipt Date: 20080409
  Transmission Date: 20081010
  Serious: Yes (Hospitalization, Other)
  Sender: FDA-Public Use
  Company Number: PHFR2007GB01062

PATIENT
  Age: 55 Year
  Sex: Male

DRUGS (1)
  1. LAMISIL [Suspect]
     Indication: ONYCHOMYCOSIS
     Dosage: UNK, UNK
     Route: 065
     Dates: start: 20070101, end: 20070201

REACTIONS (7)
  - ASTHENIA [None]
  - HYPERSENSITIVITY [None]
  - RASH GENERALISED [None]
  - RENAL FAILURE CHRONIC [None]
  - RENAL VASCULITIS [None]
  - SINUS DISORDER [None]
  - VASCULITIS [None]
